FAERS Safety Report 4501380-9 (Version None)
Quarter: 2004Q4

REPORT INFORMATION
  Report Type: 
  Country: None (occurrence: None)
  Receive Date: 20041110
  Receipt Date: 20041102
  Transmission Date: 20050328
  Serious: Yes (Other)
  Sender: FDA-Public Use
  Company Number: 2004233487US

PATIENT
  Age: 50 Year

DRUGS (1)
  1. BEXTRA [Suspect]
     Indication: ARTHRALGIA
     Dosage: 20 MG, QD

REACTIONS (3)
  - GLOMERULONEPHRITIS [None]
  - IMMUNODEFICIENCY [None]
  - RENAL FAILURE [None]
